FAERS Safety Report 16000031 (Version 2)
Quarter: 2019Q1

REPORT INFORMATION
  Report Type: Report from Study
  Country: US (occurrence: US)
  Receive Date: 20190225
  Receipt Date: 20190327
  Transmission Date: 20190418
  Serious: No
  Sender: FDA-Public Use
  Company Number: PHEH2019US008220

PATIENT
  Sex: Female

DRUGS (1)
  1. COSENTYX [Suspect]
     Active Substance: SECUKINUMAB
     Indication: PSORIASIS
     Dosage: UNK
     Route: 065
     Dates: start: 20180916

REACTIONS (5)
  - Cystitis [Unknown]
  - Malaise [Unknown]
  - Urinary tract infection [Unknown]
  - Arthralgia [Unknown]
  - Psoriasis [Unknown]
